FAERS Safety Report 6927614-9 (Version None)
Quarter: 2010Q3

REPORT INFORMATION
  Report Type: 
  Country: None (occurrence: None)
  Receive Date: 20100817
  Receipt Date: 20100803
  Transmission Date: 20110219
  Serious: Yes (Hospitalization)
  Sender: FDA-Public Use
  Company Number: PHHY2010US51821

PATIENT
  Sex: Female

DRUGS (3)
  1. VALTURNA [Suspect]
     Indication: HYPERTENSION
     Dosage: 300/320 1/DAY
     Route: 048
     Dates: start: 20100401, end: 20100518
  2. AMLODIPINE [Concomitant]
  3. ATENOLOL [Concomitant]

REACTIONS (4)
  - BRAIN STEM STROKE [None]
  - DIPLOPIA [None]
  - HYPERTENSION [None]
  - VERTIGO [None]
